FAERS Safety Report 25852153 (Version 1)
Quarter: 2025Q3

REPORT INFORMATION
  Report Type: Spontaneous
  Country: US (occurrence: None)
  Receive Date: 20250925
  Receipt Date: 20250925
  Transmission Date: 20251021
  Serious: Yes (Hospitalization)
  Sender: FDA-CTU
  Company Number: None

PATIENT
  Age: 52 Year
  Sex: Female
  Weight: 97 kg

DRUGS (1)
  1. OCTREOTIDE ACETATE [Suspect]
     Active Substance: OCTREOTIDE ACETATE
     Indication: Colon cancer
     Dosage: INJECT 1.ML (1. SYRINGE) SUBCUTANEOUSLY  THREE TIMES DAILY AS DIRECTED?
     Route: 058

REACTIONS (1)
  - Dehydration [None]

NARRATIVE: CASE EVENT DATE: 20250901
